FAERS Safety Report 9912866 (Version 1)
Quarter: 2014Q1

REPORT INFORMATION
  Report Type: Spontaneous
  Country: US (occurrence: None)
  Receive Date: 20140218
  Receipt Date: 20140218
  Transmission Date: 20141002
  Serious: Yes (Other)
  Sender: FDA-Public Use
  Company Number: None

PATIENT
  Age: 2 Week
  Sex: Female
  Weight: 59.88 kg

DRUGS (1)
  1. OMEPRAZOL [Suspect]
     Indication: ULCER
     Dosage: 1 CAPSULE DAILY 30 MINUTES BEF ONCE DAILY
     Route: 048
     Dates: start: 20140211, end: 20140212

REACTIONS (4)
  - Chills [None]
  - Headache [None]
  - Nausea [None]
  - Abdominal pain upper [None]
